FAERS Safety Report 9918863 (Version 1)
Quarter: 2014Q1

REPORT INFORMATION
  Report Type: Spontaneous
  Country: US (occurrence: US)
  Receive Date: 20140224
  Receipt Date: 20140224
  Transmission Date: 20141002
  Serious: Yes (Other)
  Sender: FDA-Public Use
  Company Number: US-BAYER-2014-026702

PATIENT
  Age: 20 Year
  Sex: Female

DRUGS (2)
  1. MIRENA [Suspect]
     Indication: CONTRACEPTION
     Dosage: 20 MCG/24HR, CONT
     Route: 015
     Dates: start: 20140210, end: 20140214
  2. MIRENA [Suspect]
     Indication: MENORRHAGIA

REACTIONS (3)
  - Device dislocation [Recovered/Resolved]
  - Procedural pain [None]
  - Medical device discomfort [None]
